FAERS Safety Report 9791674 (Version 2)
Quarter: 2014Q1

REPORT INFORMATION
  Report Type: Spontaneous
  Country: CA (occurrence: CA)
  Receive Date: 20140102
  Receipt Date: 20140102
  Transmission Date: 20141002
  Serious: Yes (Other)
  Sender: FDA-Public Use
  Company Number: CA-AMGEN-CANSP2013076017

PATIENT
  Age: 80 Year
  Sex: Male

DRUGS (5)
  1. NEUPOGEN [Suspect]
     Indication: PLASMA CELL MYELOMA
     Dosage: 1ML/300MCG, (14 DOSES PER CYCLE)
     Route: 065
     Dates: start: 2011
  2. NEUPOGEN [Suspect]
     Indication: NEUTROPENIA
  3. NEULASTA [Suspect]
     Indication: PLASMA CELL MYELOMA
     Dosage: UNK
     Route: 065
  4. NEULASTA [Suspect]
     Indication: NEUTROPENIA
  5. REVLIMID [Concomitant]
     Indication: PLASMA CELL MYELOMA
     Dosage: UNK, (28 DAY CYCLE)

REACTIONS (1)
  - Myelodysplastic syndrome [Not Recovered/Not Resolved]
